FAERS Safety Report 19205971 (Version 1)
Quarter: 2021Q2

REPORT INFORMATION
  Report Type: Spontaneous
  Country: US (occurrence: US)
  Receive Date: 20210503
  Receipt Date: 20210503
  Transmission Date: 20210717
  Serious: No
  Sender: FDA-Public Use
  Company Number: None

PATIENT
  Age: 65 Year
  Sex: Female
  Weight: 71.55 kg

DRUGS (19)
  1. ROSUVASTATIN. [Suspect]
     Active Substance: ROSUVASTATIN
     Indication: HYPERCHOLESTEROLAEMIA
     Dosage: ?          QUANTITY:1 TABLET(S);OTHER FREQUENCY:EVERY OTHER DAY;?
     Route: 048
     Dates: start: 20210101
  2. INSULIN [Concomitant]
     Active Substance: INSULIN NOS
  3. LEVOTHYROXINE. [Concomitant]
     Active Substance: LEVOTHYROXINE
  4. LOSARTAN POTASSIUM. [Concomitant]
     Active Substance: LOSARTAN POTASSIUM
  5. FLUOXETINE [Concomitant]
     Active Substance: FLUOXETINE HYDROCHLORIDE
  6. MAGNESIUM [Concomitant]
     Active Substance: MAGNESIUM
  7. BUPROPION. [Concomitant]
     Active Substance: BUPROPION
  8. PROPRANOLOL HCL [Concomitant]
     Active Substance: PROPRANOLOL HYDROCHLORIDE
  9. SPIRONOLACTONE. [Concomitant]
     Active Substance: SPIRONOLACTONE
  10. BABY ASPIRIN [Concomitant]
     Active Substance: ASPIRIN
  11. VITAMIN B COMPLEX [Concomitant]
     Active Substance: CYANOCOBALAMIN\DEXPANTHENOL\NIACINAMIDE\PYRIDOXINE HYDROCHLORIDE\RIBOFLAVIN 5^-PHOSPHATE SODIUM\THIAMINE HYDROCHLORIDE\VITAMIN B COMPLEX
  12. FISH OIL [Concomitant]
     Active Substance: FISH OIL
  13. MULTIVITAMIN [Concomitant]
     Active Substance: VITAMINS
  14. VITAMIN D [Concomitant]
     Active Substance: VITAMIN D NOS
  15. ZINC. [Concomitant]
     Active Substance: ZINC
  16. INSULIN PUMP [Concomitant]
     Active Substance: DEVICE\INSULIN NOS
  17. ANASTROZOLE. [Concomitant]
     Active Substance: ANASTROZOLE
  18. SELENIUM [Concomitant]
     Active Substance: SELENIUM
  19. COENZYME Q10 [Concomitant]
     Active Substance: DIETARY SUPPLEMENT\UBIDECARENONE

REACTIONS (1)
  - Headache [None]

NARRATIVE: CASE EVENT DATE: 20210101
